FAERS Safety Report 8284453-7 (Version None)
Quarter: 2012Q2

REPORT INFORMATION
  Report Type: 
  Country: None (occurrence: None)
  Receive Date: 20120413
  Receipt Date: 20110303
  Transmission Date: 20120825
  Serious: Yes (Hospitalization)
  Sender: FDA-Public Use
  Company Number: US-ASTRAZENECA-2011SE12285

PATIENT
  Age: 70 Year
  Sex: Female

DRUGS (6)
  1. NEXIUM [Suspect]
     Route: 048
  2. PRILOSEC [Suspect]
     Dosage: PRILOSEC
     Route: 048
  3. ACIPHEX [Concomitant]
  4. PRILOSEC [Suspect]
     Dosage: OMEPRAZOLE
     Route: 048
  5. CLARINEX [Concomitant]
  6. FLOMAX [Concomitant]

REACTIONS (5)
  - URINARY TRACT INFECTION [None]
  - CAROTID ARTERY DISEASE [None]
  - DIARRHOEA [None]
  - DRUG INEFFECTIVE [None]
  - ABDOMINAL PAIN UPPER [None]
